FAERS Safety Report 14147076 (Version 3)
Quarter: 2017Q4

REPORT INFORMATION
  Report Type: Report from Study
  Country: US (occurrence: US)
  Receive Date: 20171101
  Receipt Date: 20171114
  Transmission Date: 20180321
  Serious: Yes (Hospitalization, Other)
  Sender: FDA-Public Use
  Company Number: US-BEH-2017084620

PATIENT
  Age: 68 Year
  Sex: Male
  Weight: 102.4 kg

DRUGS (4)
  1. ZEMAIRA [Suspect]
     Active Substance: .ALPHA.1-PROTEINASE INHIBITOR HUMAN
     Dosage: UNK UNK, QW
     Route: 042
     Dates: start: 20171016, end: 20171016
  2. ZEMAIRA [Suspect]
     Active Substance: .ALPHA.1-PROTEINASE INHIBITOR HUMAN
     Indication: ALPHA-1 ANTI-TRYPSIN DEFICIENCY
     Dosage: 9450 MG (+/- 10%), 10 VIALS  QW
     Route: 042
  3. ZEMAIRA [Suspect]
     Active Substance: .ALPHA.1-PROTEINASE INHIBITOR HUMAN
     Dosage: UNK UNK, QW
     Route: 042
     Dates: start: 20171023, end: 20171023
  4. TYLENOL [Suspect]
     Active Substance: ACETAMINOPHEN
     Indication: NON-CARDIAC CHEST PAIN
     Dosage: UNK
     Route: 065
     Dates: start: 20171023, end: 20171023

REACTIONS (5)
  - Product contamination [Unknown]
  - Pneumonia [Unknown]
  - Non-cardiac chest pain [Recovered/Resolved]
  - Back pain [Recovered/Resolved]
  - Non-cardiac chest pain [Recovered/Resolved]

NARRATIVE: CASE EVENT DATE: 20171016
